FAERS Safety Report 22096549 (Version 2)
Quarter: 2023Q1

REPORT INFORMATION
  Report Type: Spontaneous
  Country: CN (occurrence: None)
  Receive Date: 20230315
  Receipt Date: 20230321
  Transmission Date: 20230417
  Serious: Yes (Hospitalization, Other)
  Sender: FDA-Public Use
  Company Number: 2023A042255

PATIENT
  Age: 59 Year
  Sex: Male
  Weight: 61.5 kg

DRUGS (5)
  1. IMFINZI [Suspect]
     Active Substance: DURVALUMAB
     Indication: Small cell lung cancer extensive stage
     Dosage: 1000MG/PERIOD
     Route: 042
     Dates: start: 20220601, end: 20220601
  2. IMFINZI [Suspect]
     Active Substance: DURVALUMAB
     Indication: Small cell lung cancer extensive stage
     Route: 042
  3. ETOPOSIDE [Concomitant]
     Active Substance: ETOPOSIDE
  4. CARBOPLATIN [Concomitant]
     Active Substance: CARBOPLATIN
  5. CISPLATIN [Concomitant]
     Active Substance: CISPLATIN

REACTIONS (2)
  - COVID-19 pneumonia [Unknown]
  - Immune-mediated lung disease [Unknown]

NARRATIVE: CASE EVENT DATE: 20221201
